FAERS Safety Report 5784204-1 (Version None)
Quarter: 2008Q2

REPORT INFORMATION
  Report Type: 
  Country: None (occurrence: None)
  Receive Date: 20080605
  Receipt Date: 20080402
  Transmission Date: 20081010
  Serious: No
  Sender: FDA-Public Use
  Company Number: A0718851A

PATIENT
  Age: 24 Year
  Sex: Female

DRUGS (2)
  1. ALLI [Suspect]
  2. CENTRUM [Concomitant]
     Dates: start: 20080330

REACTIONS (5)
  - ABDOMINAL PAIN [None]
  - FOOD CRAVING [None]
  - MENSTRUATION DELAYED [None]
  - MOOD SWINGS [None]
  - THERAPEUTIC RESPONSE UNEXPECTED [None]
